FAERS Safety Report 7265766-4 (Version None)
Quarter: 2011Q1

REPORT INFORMATION
  Report Type: 
  Country: None (occurrence: None)
  Receive Date: 20110131
  Receipt Date: 20110121
  Transmission Date: 20110831
  Serious: Yes (Other)
  Sender: FDA-Public Use
  Company Number: GB-JNJFOC-20101004592

PATIENT
  Sex: Male

DRUGS (4)
  1. HYDROCORTISONE [Concomitant]
     Indication: PREMEDICATION
     Route: 042
  2. REMICADE [Suspect]
     Indication: CROHN'S DISEASE
     Route: 042
  3. ASACOL [Concomitant]
     Indication: INFLAMMATORY BOWEL DISEASE
     Dosage: 2-4 GM
  4. REMICADE [Suspect]
     Dosage: TOTAL 3 INFUSIONS
     Route: 042

REACTIONS (6)
  - CHEST DISCOMFORT [None]
  - NAUSEA [None]
  - COLD SWEAT [None]
  - BRONCHOSPASM [None]
  - INFUSION RELATED REACTION [None]
  - FACE OEDEMA [None]
